FAERS Safety Report 6657103-0 (Version None)
Quarter: 2010Q1

REPORT INFORMATION
  Report Type: 
  Country: None (occurrence: None)
  Receive Date: 20100330
  Receipt Date: 20100318
  Transmission Date: 20100710
  Serious: Yes (Other)
  Sender: FDA-Public Use
  Company Number: US-JNJFOC-20091104504

PATIENT
  Age: 51 Year
  Sex: Female
  Weight: 47.17 kg

DRUGS (4)
  1. PEPCID AC [Suspect]
     Route: 048
  2. PEPCID AC [Suspect]
     Indication: GASTROOESOPHAGEAL REFLUX DISEASE
     Route: 048
  3. DIAZEPAM [Concomitant]
     Indication: NECK PAIN
  4. PROTONIX [Concomitant]
     Indication: GASTROOESOPHAGEAL REFLUX DISEASE

REACTIONS (4)
  - DRY THROAT [None]
  - DYSPHAGIA [None]
  - PHARYNGEAL ERYTHEMA [None]
  - SWOLLEN TONGUE [None]
